FAERS Safety Report 23737835 (Version 1)
Quarter: 2024Q2

REPORT INFORMATION
  Report Type: Spontaneous
  Country: CH (occurrence: CH)
  Receive Date: 20240412
  Receipt Date: 20240412
  Transmission Date: 20240716
  Serious: Yes (Other)
  Sender: FDA-Public Use
  Company Number: CH-009507513-2404CHE006611

PATIENT

DRUGS (1)
  1. PEMBROLIZUMAB [Suspect]
     Active Substance: PEMBROLIZUMAB
     Indication: Superficial spreading melanoma stage III
     Dosage: UNK, LASTED ONE YEAR
     Route: 065
     Dates: start: 20190525, end: 20200513

REACTIONS (6)
  - Pulmonary sarcoidosis [Recovering/Resolving]
  - Cardiac sarcoidosis [Unknown]
  - Malignant neoplasm progression [Recovering/Resolving]
  - Pulmonary mass [Recovering/Resolving]
  - Positron emission tomogram abnormal [Recovering/Resolving]
  - Positron emission tomogram abnormal [Unknown]

NARRATIVE: CASE EVENT DATE: 20190101
